FAERS Safety Report 9733209 (Version 2)
Quarter: 2013Q4

REPORT INFORMATION
  Report Type: Spontaneous
  Country: US (occurrence: US)
  Receive Date: 20131205
  Receipt Date: 20131205
  Transmission Date: 20140711
  Serious: Yes (Hospitalization, Other)
  Sender: FDA-Public Use
  Company Number: PHEH2013US022248

PATIENT
  Age: 70 Year
  Sex: Male
  Weight: 140 kg

DRUGS (3)
  1. EXELON PATCH [Suspect]
     Indication: ATTENTION DEFICIT/HYPERACTIVITY DISORDER
     Dosage: 4.6 MG (PATCH 5 CM2), DAILY
     Route: 062
     Dates: start: 20131019, end: 20131019
  2. EXELON PATCH [Suspect]
     Indication: OFF LABEL USE
  3. NAMENDA [Concomitant]

REACTIONS (3)
  - Convulsion [Recovered/Resolved]
  - Infection [Unknown]
  - Leukocytosis [Unknown]
